FAERS Safety Report 5951521-1 (Version None)
Quarter: 2008Q4

REPORT INFORMATION
  Report Type: 
  Country: None (occurrence: None)
  Receive Date: 20081113
  Receipt Date: 20081107
  Transmission Date: 20090506
  Serious: Yes (Hospitalization, Other)
  Sender: FDA-Public Use
  Company Number: US-ASTRAZENECA-2008UW14638

PATIENT
  Age: 37 Year
  Sex: Male
  Weight: 116.6 kg

DRUGS (15)
  1. SEROQUEL [Suspect]
     Indication: SLEEP DISORDER
     Dosage: 100MG, 200MG
     Route: 048
     Dates: start: 20030127, end: 20030212
  2. SEROQUEL [Suspect]
     Indication: DEPRESSION
     Dosage: 100MG, 200MG
     Route: 048
     Dates: start: 20030127, end: 20030212
  3. SEROQUEL [Suspect]
     Route: 048
     Dates: start: 20040518
  4. SEROQUEL [Suspect]
     Route: 048
     Dates: start: 20040518
  5. SEROQUEL [Suspect]
     Route: 048
     Dates: start: 20050622, end: 20060101
  6. SEROQUEL [Suspect]
     Route: 048
     Dates: start: 20050622, end: 20060101
  7. ABILIFY [Concomitant]
     Dates: start: 20030212
  8. HALDOL [Concomitant]
     Dates: start: 19980428
  9. RISPERDAL [Concomitant]
     Dates: start: 20010301, end: 20010501
  10. RISPERDAL [Concomitant]
     Dates: start: 20040101
  11. THORAZINE [Concomitant]
  12. ZYPREXA [Concomitant]
     Dosage: 10MG, 15MG, 20MG
     Dates: start: 20010701, end: 20030101
  13. ZYPREXA [Concomitant]
     Dosage: 10MG, 15MG, 20MG
     Dates: start: 20040101
  14. XANAX [Concomitant]
     Dates: start: 20050101
  15. DEPAKOTE [Concomitant]
     Dates: start: 20030212

REACTIONS (11)
  - BLOOD CHOLESTEROL INCREASED [None]
  - BLOOD TRIGLYCERIDES INCREASED [None]
  - DIABETIC COMA [None]
  - DIABETIC KETOACIDOSIS [None]
  - DIZZINESS [None]
  - GLYCOSURIA [None]
  - HYPERGLYCAEMIA [None]
  - INCOHERENT [None]
  - JOINT ARTHROPLASTY [None]
  - NEPHROLITHIASIS [None]
  - TYPE 2 DIABETES MELLITUS [None]
